FAERS Safety Report 6997724-9 (Version None)
Quarter: 2010Q3

REPORT INFORMATION
  Report Type: 
  Country: None (occurrence: None)
  Receive Date: 20100918
  Receipt Date: 20091120
  Transmission Date: 20110219
  Serious: No
  Sender: FDA-Public Use
  Company Number: US-WYE-H12332109

PATIENT
  Sex: Female
  Weight: 53.57 kg

DRUGS (6)
  1. PRISTIQ [Suspect]
     Indication: DEPRESSION
     Route: 048
     Dates: start: 20091119
  2. CONJUGATED ESTROGENS [Concomitant]
  3. AMBIEN [Concomitant]
  4. ALPRAZOLAM [Concomitant]
  5. LISINOPRIL [Concomitant]
  6. VITAMINS [Concomitant]

REACTIONS (3)
  - DECREASED APPETITE [None]
  - INSOMNIA [None]
  - NAUSEA [None]
